FAERS Safety Report 6422065-8 (Version None)
Quarter: 2009Q4

REPORT INFORMATION
  Report Type: 
  Country: None (occurrence: None)
  Receive Date: 20091030
  Receipt Date: 20091023
  Transmission Date: 20100525
  Serious: Yes (Hospitalization)
  Sender: FDA-Public Use
  Company Number: GB-BRISTOL-MYERS SQUIBB COMPANY-14827372

PATIENT
  Age: 76 Year
  Sex: Female

DRUGS (11)
  1. CETUXIMAB [Suspect]
     Indication: OESOPHAGEAL CARCINOMA
     Route: 042
     Dates: start: 20090911
  2. CISPLATIN [Suspect]
     Indication: OESOPHAGEAL CARCINOMA
     Route: 042
     Dates: start: 20090828
  3. CAPECITABINE [Suspect]
     Indication: OESOPHAGEAL CARCINOMA
     Dosage: TABS
     Route: 048
     Dates: start: 20090828, end: 20090925
  4. RADIOTHERAPY [Suspect]
     Indication: OESOPHAGEAL CARCINOMA
  5. AMIFOSTINE [Concomitant]
     Indication: PREMEDICATION
     Route: 048
  6. ATENOLOL [Concomitant]
     Indication: PREMEDICATION
     Route: 048
  7. BENDROFLUMETHIAZIDE [Concomitant]
     Indication: PREMEDICATION
     Route: 048
  8. ACETAMINOPHEN [Concomitant]
     Indication: PREMEDICATION
     Dosage: 4SEP09 11SEP09
     Route: 048
     Dates: start: 20090828
  9. RANITIDINE [Concomitant]
     Indication: PREMEDICATION
     Dosage: 04SEP09
     Dates: start: 20090828
  10. DEXAMETHASONE [Concomitant]
     Indication: PREMEDICATION
     Dosage: 04,11SEP2009
     Route: 042
     Dates: start: 20090828
  11. CHLORPHENIRAMINE MALEATE [Concomitant]
     Indication: PREMEDICATION
     Dosage: 04,11SEP2009
     Route: 042
     Dates: start: 20090828

REACTIONS (1)
  - SMALL INTESTINAL OBSTRUCTION [None]
